FAERS Safety Report 22270337 (Version 2)
Quarter: 2023Q2

REPORT INFORMATION
  Report Type: Spontaneous
  Country: US (occurrence: US)
  Receive Date: 20230501
  Receipt Date: 20230605
  Transmission Date: 20230721
  Serious: Yes (Hospitalization)
  Sender: FDA-Public Use
  Company Number: US-PFIZER INC-PV202300074726

PATIENT
  Age: 88 Year
  Sex: Female
  Weight: 52.15 kg

DRUGS (2)
  1. XELJANZ XR [Suspect]
     Active Substance: TOFACITINIB CITRATE
     Indication: Rheumatoid arthritis
     Dosage: 11 MG, 1X/DAY
     Dates: start: 201801
  2. SALSALATE [Concomitant]
     Active Substance: SALSALATE
     Dosage: UNK
     Dates: start: 201801

REACTIONS (1)
  - Nocturia [Not Recovered/Not Resolved]
